FAERS Safety Report 9045592 (Version 1)
Quarter: 2013Q1

REPORT INFORMATION
  Report Type: Report from Study
  Country: US (occurrence: US)
  Receive Date: 20130131
  Receipt Date: 20130131
  Transmission Date: 20140127
  Serious: No
  Sender: FDA-Public Use
  Company Number: US-ABBOTT-12P-163-1011006-00

PATIENT
  Age: 51 Year
  Sex: Female

DRUGS (12)
  1. HUMIRA [Suspect]
     Indication: RHEUMATOID ARTHRITIS
     Route: 058
     Dates: start: 20120919, end: 20121031
  2. HUMIRA [Suspect]
     Route: 058
     Dates: start: 20121120
  3. PROAIR [Concomitant]
     Indication: ASTHMA
     Dosage: INHALANT; AS NEEDED
  4. METHOTREXATE [Concomitant]
     Indication: PRODUCT USED FOR UNKNOWN INDICATION
     Dosage: 20MG DAILY
  5. VICODIN [Concomitant]
     Indication: ARTHRALGIA
     Dosage: 5-500MG TWICE DAILY
  6. NEXIUM [Concomitant]
     Indication: GASTROOESOPHAGEAL REFLUX DISEASE
     Dosage: 40MG DAILY
  7. NASONEX [Concomitant]
     Indication: PRODUCT USED FOR UNKNOWN INDICATION
     Dosage: 1 PUFF IN EACH NOSTRIL TWICE DAILY
  8. SINGULAIR [Concomitant]
     Indication: ASTHMA
     Dosage: 10MG DAILY
  9. DETROL LA [Concomitant]
     Indication: URINARY INCONTINENCE
     Dosage: 4MG
  10. IMIPRAMINE [Concomitant]
     Indication: URINARY INCONTINENCE
     Dosage: 75MG DAILY
  11. VIT. AND SUPPLEMENTS [Concomitant]
     Indication: PRODUCT USED FOR UNKNOWN INDICATION
     Dosage: DAILY
  12. FOLIC [Concomitant]
     Indication: PRODUCT USED FOR UNKNOWN INDICATION
     Dosage: 1MG DAILY

REACTIONS (4)
  - Upper-airway cough syndrome [Recovered/Resolved]
  - Hypertension [Not Recovered/Not Resolved]
  - Asthma [Recovered/Resolved]
  - Chest discomfort [Recovered/Resolved]
